FAERS Safety Report 17781032 (Version 1)
Quarter: 2020Q2

REPORT INFORMATION
  Report Type: Spontaneous
  Country: US (occurrence: US)
  Receive Date: 20200514
  Receipt Date: 20200514
  Transmission Date: 20200714
  Serious: No
  Sender: FDA-Public Use
  Company Number: US-SHIRE-US202005723

PATIENT
  Sex: Female
  Weight: 73.5 kg

DRUGS (2)
  1. GATTEX [Suspect]
     Active Substance: TEDUGLUTIDE\WATER
     Indication: SHORT-BOWEL SYNDROME
     Dosage: UNK UNK, 1X/DAY:QD
     Route: 050
  2. GATTEX [Suspect]
     Active Substance: TEDUGLUTIDE\WATER
     Dosage: 0.188 MILLILITER, 1X/DAY:QD
     Route: 065
     Dates: start: 20200121, end: 20200511

REACTIONS (2)
  - Therapy non-responder [Unknown]
  - Product dose omission [Unknown]
